FAERS Safety Report 7611338-9 (Version None)
Quarter: 2011Q3

REPORT INFORMATION
  Report Type: 
  Country: None (occurrence: None)
  Receive Date: 20110715
  Receipt Date: 20110707
  Transmission Date: 20111222
  Serious: Yes (Death, Other)
  Sender: FDA-Public Use
  Company Number: GB-ROCHE-633388

PATIENT
  Age: 52 Year
  Sex: Male

DRUGS (2)
  1. MYCOPHENOLATE MOFETIL [Suspect]
     Route: 065
  2. GLICLAZIDE [Concomitant]
     Route: 065

REACTIONS (3)
  - OPTIC NEUROPATHY [None]
  - RESPIRATORY FAILURE [None]
  - MYELOPATHY [None]
